FAERS Safety Report 22260948 (Version 2)
Quarter: 2023Q2

REPORT INFORMATION
  Report Type: Spontaneous
  Country: US (occurrence: US)
  Receive Date: 20230427
  Receipt Date: 20230504
  Transmission Date: 20230722
  Serious: Yes (Death, Other)
  Sender: FDA-Public Use
  Company Number: US-APIL-2312804US

PATIENT
  Sex: Female
  Weight: 73.9 kg

DRUGS (2)
  1. REFRESH PLUS [Suspect]
     Active Substance: CARBOXYMETHYLCELLULOSE SODIUM
     Indication: Dry eye
     Dosage: UNK UNK, PR
     Route: 047
     Dates: start: 2013, end: 2020
  2. COPAXONE [Concomitant]
     Active Substance: GLATIRAMER ACETATE
     Indication: Multiple sclerosis

REACTIONS (3)
  - Breast cancer stage IV [Fatal]
  - Breast cancer metastatic [Fatal]
  - Expired product administered [Unknown]

NARRATIVE: CASE EVENT DATE: 20151201
